FAERS Safety Report 23980289 (Version 1)
Quarter: 2024Q2

REPORT INFORMATION
  Report Type: Spontaneous
  Country: JP (occurrence: JP)
  Receive Date: 20240617
  Receipt Date: 20240617
  Transmission Date: 20240716
  Serious: Yes (Other)
  Sender: FDA-Public Use
  Company Number: JP-TEVA-VS-3208972

PATIENT
  Age: 78 Year
  Sex: Female

DRUGS (2)
  1. LETROZOLE [Suspect]
     Active Substance: LETROZOLE
     Indication: Malignant pleural effusion
     Route: 065
     Dates: start: 202005
  2. ABEMACICLIB [Suspect]
     Active Substance: ABEMACICLIB
     Indication: Malignant pleural effusion
     Route: 065
     Dates: start: 202005

REACTIONS (3)
  - Diarrhoea [Unknown]
  - Anaemia [Unknown]
  - Hepatic function abnormal [Unknown]
